FAERS Safety Report 5493805-X (Version None)
Quarter: 2007Q4

REPORT INFORMATION
  Report Type: 
  Country: None (occurrence: None)
  Receive Date: 20071015
  Receipt Date: 20070907
  Transmission Date: 20080405
  Serious: No
  Sender: FDA-Public Use
  Company Number: 2007SP003119

PATIENT
  Age: 83 Year
  Sex: Male
  Weight: 73.0291 kg

DRUGS (9)
  1. LUNESTA [Suspect]
     Indication: INSOMNIA
     Dosage: 3 MG; PRN; ORAL, 3 MG; PRN; ORAL, 3 MG; PRN; ORAL
     Route: 048
     Dates: start: 20070808, end: 20070101
  2. LUNESTA [Suspect]
     Indication: INSOMNIA
     Dosage: 3 MG; PRN; ORAL, 3 MG; PRN; ORAL, 3 MG; PRN; ORAL
     Route: 048
     Dates: start: 20070101, end: 20070906
  3. LUNESTA [Suspect]
     Indication: INSOMNIA
     Dosage: 3 MG; PRN; ORAL, 3 MG; PRN; ORAL, 3 MG; PRN; ORAL
     Route: 048
     Dates: start: 20070907
  4. VITAMINS [Concomitant]
  5. CALCIUM CITRATE [Concomitant]
  6. FISH OIL [Concomitant]
  7. SIMVASTATIN [Concomitant]
  8. ASPIRIN [Concomitant]
  9. TEMAZEPAM [Concomitant]

REACTIONS (1)
  - DRUG EFFECT DECREASED [None]
